FAERS Safety Report 6493680-0 (Version None)
Quarter: 2009Q4

REPORT INFORMATION
  Report Type: 
  Country: None (occurrence: None)
  Receive Date: 20091214
  Receipt Date: 20091207
  Transmission Date: 20100525
  Serious: Yes (Hospitalization)
  Sender: FDA-Public Use
  Company Number: B0612172A

PATIENT
  Sex: Female

DRUGS (6)
  1. CLAMOXYL [Suspect]
     Indication: INFECTION
     Dosage: 500MG SIX TIMES PER DAY
     Route: 048
     Dates: start: 20091024, end: 20091025
  2. NORSET [Suspect]
     Dosage: 15MG TWICE PER DAY
     Route: 048
     Dates: start: 20091020, end: 20091027
  3. ROVAMYCINE [Suspect]
     Indication: INFECTION
     Dosage: 1500000IU FOUR TIMES PER DAY
     Route: 048
     Dates: start: 20091024, end: 20091025
  4. TIAPRIDAL [Concomitant]
     Indication: AGITATION
     Dosage: 5DROP SINGLE DOSE
     Route: 048
     Dates: start: 20091019, end: 20091019
  5. LOVENOX [Concomitant]
     Dosage: 2000IU PER DAY
     Route: 058
     Dates: start: 20091019, end: 20091029
  6. ARIMIDEX [Concomitant]
     Indication: BREAST CANCER FEMALE
     Dosage: 1MG PER DAY
     Route: 048

REACTIONS (5)
  - DERMATITIS EXFOLIATIVE [None]
  - DRY SKIN [None]
  - PURPURA [None]
  - RASH GENERALISED [None]
  - SKIN DISCOLOURATION [None]
